FAERS Safety Report 24847594 (Version 1)
Quarter: 2025Q1

REPORT INFORMATION
  Report Type: Spontaneous
  Country: CO (occurrence: CO)
  Receive Date: 20250116
  Receipt Date: 20250116
  Transmission Date: 20250408
  Serious: Yes (Death)
  Sender: BOEHRINGER INGELHEIM
  Company Number: CO-BoehringerIngelheim-2025-BI-002431

PATIENT
  Age: 77 Year
  Sex: Female
  Weight: 68 kg

DRUGS (1)
  1. OFEV [Suspect]
     Active Substance: NINTEDANIB
     Indication: Pulmonary fibrosis
     Dates: start: 20240102

REACTIONS (3)
  - Pulmonary fibrosis [Fatal]
  - Respiratory failure [Fatal]
  - Disease complication [Fatal]

NARRATIVE: CASE EVENT DATE: 20241230
